FAERS Safety Report 8792605 (Version 2)
Quarter: 2012Q4

REPORT INFORMATION
  Report Type: 
  Country: US (occurrence: US)
  Receive Date: 20120918
  Receipt Date: 20121116
  Transmission Date: 20130627
  Serious: Yes (Death)
  Sender: FDA-Public Use
  Company Number: US-CELGENEUS-163-21880-12091506

PATIENT
  Age: 80 Year
  Sex: Male

DRUGS (3)
  1. REVLIMID [Suspect]
     Indication: MULTIPLE MYELOMA
     Dosage: 18.75 Milligram
     Route: 048
     Dates: start: 20120413, end: 20120820
  2. ZOMETA [Concomitant]
     Indication: MULTIPLE MYELOMA
     Dosage: .0667 Milligram
     Route: 041
     Dates: start: 20120413, end: 20120820
  3. DECADRON [Concomitant]
     Indication: MULTIPLE MYELOMA
     Dosage: 5.7143 Milligram
     Route: 048
     Dates: start: 20120413, end: 20120820

REACTIONS (1)
  - Septic shock [Fatal]
